FAERS Safety Report 4424705-1 (Version None)
Quarter: 2004Q3

REPORT INFORMATION
  Report Type: 
  Country: None (occurrence: None)
  Receive Date: 20040719
  Receipt Date: 20040113
  Transmission Date: 20050211
  Serious: Yes (Other)
  Sender: FDA-Public Use
  Company Number: 190300

PATIENT
  Age: 30 Year
  Sex: Female
  Weight: 54.4316 kg

DRUGS (3)
  1. AVONEX [Suspect]
     Indication: MULTIPLE SCLEROSIS
     Dosage: 30 MCG QW IM
     Route: 030
     Dates: start: 20010301, end: 20030901
  2. AVONEX [Suspect]
     Indication: MULTIPLE SCLEROSIS
     Dosage: 30 MCG QW IM
     Route: 030
     Dates: start: 20030901, end: 20040105
  3. BIRTH CONTROL PILLS (NOS) [Concomitant]

REACTIONS (6)
  - ASTHENIA [None]
  - CONGESTIVE CARDIOMYOPATHY [None]
  - HYPERTENSION [None]
  - MOOD ALTERED [None]
  - SINUSITIS [None]
  - WHITE BLOOD CELL COUNT INCREASED [None]
